FAERS Safety Report 6335459-6 (Version None)
Quarter: 2009Q3

REPORT INFORMATION
  Report Type: 
  Country: None (occurrence: None)
  Receive Date: 20090831
  Receipt Date: 20090826
  Transmission Date: 20100115
  Serious: Yes (Hospitalization)
  Sender: FDA-Public Use
  Company Number: CH-ROCHE-652878

PATIENT
  Sex: Male
  Weight: 85 kg

DRUGS (2)
  1. INTERFERON ALFA-2A [Suspect]
     Indication: RENAL CANCER METASTATIC
     Route: 065
     Dates: start: 20090129, end: 20090722
  2. BEVACIZUMAB [Suspect]
     Indication: RENAL CANCER METASTATIC
     Route: 042
     Dates: start: 20090129, end: 20090722

REACTIONS (2)
  - CEREBRAL HAEMORRHAGE [None]
  - METASTASES TO CENTRAL NERVOUS SYSTEM [None]
